FAERS Safety Report 6213169-3 (Version None)
Quarter: 2009Q2

REPORT INFORMATION
  Report Type: 
  Country: None (occurrence: None)
  Receive Date: 20090603
  Receipt Date: 20090527
  Transmission Date: 20091009
  Serious: Yes (Hospitalization)
  Sender: FDA-Public Use
  Company Number: FR-ABBOTT-09P-056-0576005-00

PATIENT
  Age: 49 Year
  Sex: Female

DRUGS (2)
  1. HUMIRA [Suspect]
     Indication: ANKYLOSING SPONDYLITIS
     Route: 058
     Dates: start: 20081029, end: 20090304
  2. CORTANCYL [Suspect]
     Indication: ANKYLOSING SPONDYLITIS

REACTIONS (2)
  - ABDOMINAL ABSCESS [None]
  - ACUTE ABDOMEN [None]
